FAERS Safety Report 23093344 (Version 1)
Quarter: 2023Q4

REPORT INFORMATION
  Report Type: Spontaneous
  Country: US (occurrence: US)
  Receive Date: 20231022
  Receipt Date: 20231022
  Transmission Date: 20240109
  Serious: No
  Sender: FDA-Public Use
  Company Number: US-Teikoku Pharma USA-TPU2023-00442

PATIENT
  Sex: Female
  Weight: 44.492 kg

DRUGS (1)
  1. LIDOCAINE PATCH [Suspect]
     Active Substance: LIDOCAINE
     Indication: Arthralgia
     Route: 061
     Dates: start: 202306

REACTIONS (1)
  - Application site urticaria [Recovered/Resolved]

NARRATIVE: CASE EVENT DATE: 20230601
